FAERS Safety Report 21184631 (Version 2)
Quarter: 2022Q3

REPORT INFORMATION
  Report Type: Spontaneous
  Country: CA (occurrence: CA)
  Receive Date: 20220808
  Receipt Date: 20220829
  Transmission Date: 20221026
  Serious: Yes (Other)
  Sender: FDA-Public Use
  Company Number: None

PATIENT
  Sex: Female

DRUGS (7)
  1. CARBOPLATIN [Suspect]
     Active Substance: CARBOPLATIN
     Indication: Ovarian endometrioid carcinoma
     Route: 042
  2. LETROZOLE [Suspect]
     Active Substance: LETROZOLE
     Indication: Ovarian endometrioid carcinoma
     Route: 065
  3. PACLITAXEL [Suspect]
     Active Substance: PACLITAXEL
     Indication: Ovarian endometrioid carcinoma
     Route: 042
  4. MEGESTROL ACETATE [Suspect]
     Active Substance: MEGESTROL ACETATE
     Indication: Ovarian endometrioid carcinoma
     Route: 065
  5. MESTRANOL [Suspect]
     Active Substance: MESTRANOL
     Indication: Ovarian endometrioid carcinoma
  6. PALBOCICLIB [Suspect]
     Active Substance: PALBOCICLIB
     Indication: Ovarian endometrioid carcinoma
     Route: 065
  7. TAMOXIFEN [Suspect]
     Active Substance: TAMOXIFEN
     Indication: Ovarian endometrioid carcinoma
     Route: 065

REACTIONS (4)
  - Malignant neoplasm progression [Unknown]
  - Metastases to liver [Unknown]
  - Ovarian endometrioid carcinoma [Unknown]
  - Off label use [Unknown]
